FAERS Safety Report 13306277 (Version 1)
Quarter: 2017Q1

REPORT INFORMATION
  Report Type: Spontaneous
  Country: BR (occurrence: BR)
  Receive Date: 20170308
  Receipt Date: 20170308
  Transmission Date: 20170428
  Serious: Yes (Other)
  Sender: FDA-Public Use
  Company Number: BR-PFIZER INC-2017098508

PATIENT
  Sex: Male

DRUGS (1)
  1. ALDAZIDA [Suspect]
     Active Substance: HYDROCHLOROTHIAZIDE\SPIRONOLACTONE
     Indication: BLOOD PRESSURE MEASUREMENT
     Dosage: UNK, 2X/DAY

REACTIONS (1)
  - Diabetes mellitus [Not Recovered/Not Resolved]
